FAERS Safety Report 7380427-9 (Version None)
Quarter: 2011Q1

REPORT INFORMATION
  Report Type: 
  Country: None (occurrence: None)
  Receive Date: 20110329
  Receipt Date: 20110310
  Transmission Date: 20110831
  Serious: Yes (Hospitalization)
  Sender: FDA-Public Use
  Company Number: JP-ROCHE-765976

PATIENT
  Age: 31 Year
  Sex: Male

DRUGS (7)
  1. PARIET [Concomitant]
     Route: 048
  2. DENOSINE IV [Suspect]
     Route: 041
  3. METHYCOBAL [Concomitant]
  4. ITOROL [Concomitant]
     Route: 048
  5. MEDROL [Concomitant]
  6. RADICUT [Suspect]
     Route: 041
     Dates: start: 20110227, end: 20110308
  7. SLONNON [Suspect]
     Route: 042
     Dates: start: 20110227, end: 20110304

REACTIONS (1)
  - NEPHROTIC SYNDROME [None]
